FAERS Safety Report 5451444-0 (Version None)
Quarter: 2007Q3

REPORT INFORMATION
  Report Type: 
  Country: None (occurrence: None)
  Receive Date: 20070911
  Receipt Date: 20070911
  Transmission Date: 20080115
  Serious: No
  Sender: FDA-Public Use
  Company Number: None

PATIENT
  Age: 58 Year
  Sex: Female
  Weight: 120.6568 kg

DRUGS (1)
  1. ELOXATIN [Suspect]
     Indication: COLON CANCER METASTATIC
     Dosage: 190 MG EVERY 2 WEEKS IV
     Route: 042
     Dates: start: 20070514, end: 20070910

REACTIONS (3)
  - CHEST DISCOMFORT [None]
  - OXYGEN SATURATION DECREASED [None]
  - PRURITUS [None]
